FAERS Safety Report 6462155-7 (Version None)
Quarter: 2009Q4

REPORT INFORMATION
  Report Type: 
  Country: None (occurrence: None)
  Receive Date: 20091130
  Receipt Date: 20091028
  Transmission Date: 20100525
  Serious: No
  Sender: FDA-Public Use
  Company Number: US-BAYER-200916242BCC

PATIENT
  Age: 28 Year
  Sex: Male
  Weight: 66 kg

DRUGS (4)
  1. MIDOL [Suspect]
     Indication: HEADACHE
     Dosage: TOTAL DAILY DOSE: 440 MG  UNIT DOSE: 220 MG
     Route: 048
     Dates: start: 20091027
  2. PERCOCET [Concomitant]
     Route: 065
  3. LORCET-HD [Concomitant]
     Route: 065
  4. TYLENOL (CAPLET) [Concomitant]
     Route: 065

REACTIONS (1)
  - DRUG SCREEN POSITIVE [None]
